FAERS Safety Report 9049920 (Version 2)
Quarter: 2013Q1

REPORT INFORMATION
  Report Type: Spontaneous
  Country: JP (occurrence: JP)
  Receive Date: 20130205
  Receipt Date: 20130213
  Transmission Date: 20140127
  Serious: Yes (Other)
  Sender: FDA-Public Use
  Company Number: JP-AMGEN-JPNSP2013007346

PATIENT
  Sex: 0

DRUGS (4)
  1. ENBREL [Suspect]
     Indication: RHEUMATOID ARTHRITIS
     Dosage: 50 MG, WEEKLY
  2. RHEUMATREX                         /00113801/ [Suspect]
     Dosage: 6 MG, WEEKLY
     Route: 048
  3. AZULFIDINE EN [Suspect]
     Dosage: UNK
     Route: 048
  4. FOLIAMIN [Concomitant]
     Dosage: UNK

REACTIONS (1)
  - Inguinal hernia [Unknown]
